FAERS Safety Report 10351453 (Version 1)
Quarter: 2014Q3

REPORT INFORMATION
  Report Type: Spontaneous
  Country: DE (occurrence: DE)
  Receive Date: 20140730
  Receipt Date: 20140730
  Transmission Date: 20150326
  Serious: Yes (Other)
  Sender: FDA-Public Use
  Company Number: PHHY2014DE092129

PATIENT

DRUGS (4)
  1. BECLOMETHASONE [Suspect]
     Active Substance: BECLOMETHASONE
     Route: 064
  2. CLEMASTINE FUMARATE. [Suspect]
     Active Substance: CLEMASTINE FUMARATE
     Route: 064
  3. OFLOXACIN SANDOZ [Suspect]
     Active Substance: OFLOXACIN
     Dosage: MATERNAL DOSE: 100 MG
     Route: 064
  4. SALBUTAMOL [Suspect]
     Active Substance: ALBUTEROL
     Route: 064

REACTIONS (2)
  - Foetal exposure during pregnancy [Unknown]
  - Poland^s syndrome [Unknown]
